FAERS Safety Report 11458226 (Version 1)
Quarter: 2015Q3

REPORT INFORMATION
  Report Type: Spontaneous
  Country: CA (occurrence: None)
  Receive Date: 20150903
  Receipt Date: 20150903
  Transmission Date: 20151125
  Serious: Yes (Disabling)
  Sender: FDA-Public Use
  Company Number: None

PATIENT
  Age: 40 Year
  Sex: Male
  Weight: 77.11 kg

DRUGS (3)
  1. LYRICA [Suspect]
     Active Substance: PREGABALIN
     Indication: NEURALGIA
     Route: 048
  2. VALIUM [Concomitant]
     Active Substance: DIAZEPAM
  3. VITAMIN B [Concomitant]
     Active Substance: VITAMIN B

REACTIONS (6)
  - Panic attack [None]
  - Insomnia [None]
  - Depression [None]
  - Impaired work ability [None]
  - Drug withdrawal syndrome [None]
  - Anxiety [None]

NARRATIVE: CASE EVENT DATE: 20150901
